FAERS Safety Report 19705827 (Version 2)
Quarter: 2021Q3

REPORT INFORMATION
  Report Type: Report from Study
  Country: None (occurrence: BR)
  Receive Date: 20210817
  Receipt Date: 20210823
  Transmission Date: 20211014
  Serious: Yes (Other)
  Sender: FDA-Public Use
  Company Number: BR-ABBVIE-16K-020-1741590-00

PATIENT
  Sex: Male
  Weight: 80 kg

DRUGS (16)
  1. PARACETAMOL [Suspect]
     Active Substance: ACETAMINOPHEN
     Indication: PAIN
     Route: 048
     Dates: start: 2013
  2. ARAVA [Concomitant]
     Active Substance: LEFLUNOMIDE
     Indication: NEUROPATHIC MUSCULAR ATROPHY
     Route: 048
  3. ARAVA [Concomitant]
     Active Substance: LEFLUNOMIDE
     Indication: RHEUMATOID ARTHRITIS
  4. HUMIRA [Suspect]
     Active Substance: ADALIMUMAB
     Indication: RHEUMATOID ARTHRITIS
     Route: 058
     Dates: start: 20140801, end: 201503
  5. PREDNISONE. [Concomitant]
     Active Substance: PREDNISONE
     Indication: PAIN
     Route: 048
     Dates: start: 2006
  6. PREDNISONE. [Concomitant]
     Active Substance: PREDNISONE
     Route: 048
  7. ARAVA [Concomitant]
     Active Substance: LEFLUNOMIDE
     Indication: PROPHYLAXIS
     Route: 048
     Dates: start: 201610
  8. HUMIRA [Suspect]
     Active Substance: ADALIMUMAB
     Indication: RHEUMATOID ARTHRITIS
     Route: 058
     Dates: start: 201507, end: 201701
  9. METHOTREXATE. [Concomitant]
     Active Substance: METHOTREXATE
     Dosage: ONE TABLET ON MONDAY AND ON SATURDAY?2 TABLET
     Dates: start: 2008
  10. OMEPRAZOLE. [Concomitant]
     Active Substance: OMEPRAZOLE
     Indication: GASTRIC DISORDER
     Route: 048
     Dates: start: 2014
  11. ACETYLSALICYLIC ACID [Concomitant]
     Active Substance: ASPIRIN
     Indication: PRODUCT USED FOR UNKNOWN INDICATION
  12. METHOTREXATE. [Concomitant]
     Active Substance: METHOTREXATE
     Indication: RHEUMATOID ARTHRITIS
     Route: 048
     Dates: start: 2013
  13. ENALAPRIL [Concomitant]
     Active Substance: ENALAPRIL
     Indication: HYPERTENSION
     Route: 048
     Dates: start: 201610
  14. HUMIRA [Suspect]
     Active Substance: ADALIMUMAB
     Route: 058
     Dates: start: 20140801, end: 20170411
  15. METHOTREXATE. [Concomitant]
     Active Substance: METHOTREXATE
     Route: 048
     Dates: start: 201610
  16. LEFLUNOMIDE. [Concomitant]
     Active Substance: LEFLUNOMIDE
     Indication: RHEUMATOID ARTHRITIS
     Dosage: 2 TABLETS ON WEDNESDAYS AND ON FRIDAYS
     Route: 048
     Dates: start: 2008

REACTIONS (19)
  - Arthralgia [Recovering/Resolving]
  - Headache [Recovering/Resolving]
  - Weight decreased [Unknown]
  - Pain [Unknown]
  - Blood pressure fluctuation [Recovering/Resolving]
  - Gait disturbance [Unknown]
  - Urethral pain [Unknown]
  - Pain in extremity [Recovering/Resolving]
  - Prostate cancer metastatic [Not Recovered/Not Resolved]
  - Rheumatoid arthritis [Recovered/Resolved]
  - Hepatomegaly [Recovered/Resolved]
  - Hepatic pain [Recovered/Resolved]
  - Hepatic steatosis [Recovered/Resolved]
  - Testicular pain [Unknown]
  - Muscle spasms [Recovering/Resolving]
  - Blood glucose increased [Recovering/Resolving]
  - Prostatic specific antigen increased [Unknown]
  - Joint swelling [Recovering/Resolving]
  - Weight increased [Recovering/Resolving]

NARRATIVE: CASE EVENT DATE: 2014
